FAERS Safety Report 4721905-8 (Version None)
Quarter: 2005Q3

REPORT INFORMATION
  Report Type: 
  Country: None (occurrence: None)
  Receive Date: 20050720
  Receipt Date: 20050706
  Transmission Date: 20060218
  Serious: No
  Sender: FDA-Public Use
  Company Number: 2005FR-00118

PATIENT
  Age: 33 Year
  Sex: Female
  Weight: 64 kg

DRUGS (20)
  1. RANITIDINE [Suspect]
     Indication: PREMEDICATION
     Dosage: 300 MG, ORAL
     Route: 048
  2. REMIFENTANIL [Concomitant]
  3. METOCLOPRAMIDE [Concomitant]
  4. SUXAMETHONIUM [Concomitant]
  5. SODIUM CITRATE [Concomitant]
  6. ETOMIDATE [Concomitant]
  7. ISOFLURANE [Concomitant]
  8. NITROUS OXIDE [Concomitant]
  9. VECURONIUM BROMIDE [Concomitant]
  10. ERGOTAMINE [Concomitant]
  11. MORPHINE [Concomitant]
  12. ACETAMINOPHEN [Concomitant]
  13. GLYCOPYRRONUIM BROMIDE [Concomitant]
  14. DICLOFENAC SODIUM [Concomitant]
  15. GENTAMICIN [Concomitant]
  16. CEFUROXIME [Concomitant]
  17. OXYTOCIN [Concomitant]
  18. METARAMINOL [Concomitant]
  19. NEOSTIGMINE [Concomitant]
  20. NAC1 [Concomitant]

REACTIONS (5)
  - BRADYCARDIA [None]
  - HYPOTENSION [None]
  - POSTPARTUM HAEMORRHAGE [None]
  - UTERINE ATONY [None]
  - UTERINE HAEMORRHAGE [None]
